FAERS Safety Report 7003107-8 (Version None)
Quarter: 2010Q3

REPORT INFORMATION
  Report Type: 
  Country: None (occurrence: None)
  Receive Date: 20100920
  Receipt Date: 20091231
  Transmission Date: 20110219
  Serious: No
  Sender: FDA-Public Use
  Company Number: US-ASTRAZENECA-2010SE00050

PATIENT
  Sex: Male

DRUGS (2)
  1. SEROQUEL [Suspect]
     Route: 048
  2. LITHIUM [Concomitant]

REACTIONS (5)
  - ABNORMAL DREAMS [None]
  - DEMENTIA [None]
  - DIARRHOEA [None]
  - DIZZINESS [None]
  - WEIGHT DECREASED [None]
